FAERS Safety Report 22155519 (Version 1)
Quarter: 2023Q1

REPORT INFORMATION
  Report Type: Report from Study
  Country: US (occurrence: US)
  Receive Date: 20230330
  Receipt Date: 20230330
  Transmission Date: 20230417
  Serious: Yes (Death, Other)
  Sender: FDA-Public Use
  Company Number: US-MYLANLABS-2023M1033534

PATIENT

DRUGS (1)
  1. BETAMETHASONE [Suspect]
     Active Substance: BETAMETHASONE
     Indication: Hydrops foetalis
     Dosage: 12 MILLIGRAM, QD (SIX DOSES IN THREE COURSES)
     Route: 064

REACTIONS (3)
  - Drug ineffective for unapproved indication [Fatal]
  - Foetal exposure during pregnancy [Fatal]
  - Off label use [Unknown]
